FAERS Safety Report 25030099 (Version 1)
Quarter: 2025Q1

REPORT INFORMATION
  Report Type: Spontaneous
  Country: JP (occurrence: JP)
  Receive Date: 20250303
  Receipt Date: 20250303
  Transmission Date: 20250408
  Serious: No
  Sender: ASTELLAS
  Company Number: JP-ASTELLAS-2025-AER-011382

PATIENT
  Age: 9 Decade

DRUGS (2)
  1. VESICARE [Suspect]
     Active Substance: SOLIFENACIN SUCCINATE
     Indication: Product used for unknown indication
     Route: 048
  2. VESICARE [Suspect]
     Active Substance: SOLIFENACIN SUCCINATE
     Indication: Product used for unknown indication
     Route: 048

REACTIONS (3)
  - Dysphagia [Unknown]
  - Product prescribing issue [Unknown]
  - Off label use [Unknown]
